FAERS Safety Report 8809532 (Version 1)
Quarter: 2012Q4

REPORT INFORMATION
  Report Type: 
  Country: FR (occurrence: FR)
  Receive Date: 20120926
  Receipt Date: 20120926
  Transmission Date: 20130627
  Serious: Yes (Other)
  Sender: FDA-Public Use
  Company Number: FR-PFIZER INC-2012233633

PATIENT
  Age: 42 Year

DRUGS (2)
  1. SOLU-MEDROL [Suspect]
     Dosage: 500 mg, for 3 days in Apr, May and June
     Route: 040
  2. OMEPRAZOLE [Concomitant]

REACTIONS (1)
  - Hepatocellular injury [Unknown]
